FAERS Safety Report 10453438 (Version 2)
Quarter: 2014Q4

REPORT INFORMATION
  Report Type: Spontaneous
  Country: IT (occurrence: IT)
  Receive Date: 20140915
  Receipt Date: 20141226
  Transmission Date: 20150528
  Serious: Yes (Other)
  Sender: FDA-Public Use
  Company Number: IT-MYLAN-2014M1003999

PATIENT

DRUGS (1)
  1. FLUOXETINE [Suspect]
     Active Substance: FLUOXETINE\FLUOXETINE HYDROCHLORIDE
     Indication: AFFECTIVE DISORDER
     Dosage: 40 MG, UNK
     Route: 048
     Dates: end: 20140505

REACTIONS (2)
  - Abortion spontaneous [Unknown]
  - Exposure during pregnancy [Unknown]
